FAERS Safety Report 6626322-1 (Version None)
Quarter: 2010Q1

REPORT INFORMATION
  Report Type: 
  Country: None (occurrence: None)
  Receive Date: 20100310
  Receipt Date: 20100308
  Transmission Date: 20100710
  Serious: Yes (Other)
  Sender: FDA-Public Use
  Company Number: AU-WYE-G05699810

PATIENT
  Sex: Female

DRUGS (1)
  1. EFFEXOR XR [Suspect]
     Dosage: UNKNOWN

REACTIONS (7)
  - ANXIETY [None]
  - BALANCE DISORDER [None]
  - DRUG WITHDRAWAL SYNDROME [None]
  - MENTAL DISORDER [None]
  - PANIC ATTACK [None]
  - SUICIDAL IDEATION [None]
  - VOMITING [None]
